FAERS Safety Report 24132621 (Version 1)
Quarter: 2024Q3

REPORT INFORMATION
  Report Type: Spontaneous
  Country: US (occurrence: US)
  Receive Date: 20240724
  Receipt Date: 20240724
  Transmission Date: 20241017
  Serious: No
  Sender: PFIZER
  Company Number: US-PFIZER INC-PV202400095558

PATIENT
  Age: 70 Year
  Sex: Female

DRUGS (3)
  1. TUKYSA [Interacting]
     Active Substance: TUCATINIB
     Dosage: 150 MG
  2. SERTRALINE [Interacting]
     Active Substance: SERTRALINE HYDROCHLORIDE
     Dosage: UNK
  3. WARFARIN [Interacting]
     Active Substance: WARFARIN
     Dosage: UNK

REACTIONS (1)
  - Potentiating drug interaction [Unknown]
